FAERS Safety Report 13271334 (Version 1)
Quarter: 2017Q1

REPORT INFORMATION
  Report Type: Spontaneous
  Country: GB (occurrence: GB)
  Receive Date: 20170226
  Receipt Date: 20170226
  Transmission Date: 20170428
  Serious: Yes (Other)
  Sender: FDA-Public Use
  Company Number: GB-MYLANLABS-2017M1012170

PATIENT

DRUGS (9)
  1. DOXYCYCLINE. [Suspect]
     Active Substance: DOXYCYCLINE
     Dosage: UNK
     Dates: start: 20170206
  2. ADCAL [Concomitant]
     Active Substance: CALCIUM CARBONATE
     Dosage: LEMON
     Dates: start: 20130409
  3. VENTOLIN [Concomitant]
     Active Substance: ALBUTEROL SULFATE
     Dosage: 2 DF, QID
     Route: 055
     Dates: start: 20161212, end: 20170109
  4. WARFARIN SODIUM. [Concomitant]
     Active Substance: WARFARIN SODIUM
     Dosage: TAKE AS PRESCRIBED IN ANTICOAGULANT TREATMENT BOOK
     Dates: start: 20140401
  5. ERYTHROMYCIN. [Concomitant]
     Active Substance: ERYTHROMYCIN
     Dosage: 1 DF, QID
     Dates: start: 20170206
  6. SYMBICORT [Concomitant]
     Active Substance: BUDESONIDE\FORMOTEROL FUMARATE DIHYDRATE
     Dosage: 1 DF, BID
     Dates: start: 20090903
  7. TIOTROPIUM [Concomitant]
     Active Substance: TIOTROPIUM
     Dosage: 1 DF, QD
     Dates: start: 20141023
  8. PREDNISOLONE. [Concomitant]
     Active Substance: PREDNISOLONE
     Dosage: IN MORNING AFTER FOOD
     Dates: start: 20170202, end: 20170207
  9. SALAMOL [Concomitant]
     Active Substance: ALBUTEROL
     Dosage: ONE OR TWO PUFFS TO BE INHALED UP TO FOUR TIMES...
     Route: 055
     Dates: start: 20160413

REACTIONS (1)
  - Suicidal ideation [Unknown]

NARRATIVE: CASE EVENT DATE: 20170207
